FAERS Safety Report 18713112 (Version 2)
Quarter: 2021Q1

REPORT INFORMATION
  Report Type: Report from Study
  Country: GB (occurrence: GB)
  Receive Date: 20210107
  Receipt Date: 20210201
  Transmission Date: 20210419
  Serious: Yes (Hospitalization)
  Sender: FDA-Public Use
  Company Number: GB-JNJFOC-20210106689

PATIENT
  Age: 5 Decade
  Sex: Female

DRUGS (2)
  1. STELARA [Suspect]
     Active Substance: USTEKINUMAB
     Route: 058
     Dates: start: 2020
  2. STELARA [Suspect]
     Active Substance: USTEKINUMAB
     Indication: CROHN^S DISEASE
     Route: 042
     Dates: start: 20201127

REACTIONS (7)
  - Hypersensitivity [Unknown]
  - Memory impairment [Unknown]
  - Trigeminal neuralgia [Unknown]
  - Crohn^s disease [Unknown]
  - Muscle twitching [Unknown]
  - Urinary tract infection [Unknown]
  - Bladder disorder [Unknown]
